FAERS Safety Report 6040727-1 (Version None)
Quarter: 2009Q1

REPORT INFORMATION
  Report Type: 
  Country: None (occurrence: None)
  Receive Date: 20090116
  Receipt Date: 20080708
  Transmission Date: 20090719
  Serious: No
  Sender: FDA-Public Use
  Company Number: US-BRISTOL-MYERS SQUIBB COMPANY-14189534

PATIENT
  Sex: Male

DRUGS (1)
  1. ABILIFY [Suspect]

REACTIONS (9)
  - ABASIA [None]
  - DYSARTHRIA [None]
  - DYSSTASIA [None]
  - MEMORY IMPAIRMENT [None]
  - PNEUMONIA [None]
  - READING DISORDER [None]
  - STUPOR [None]
  - TREMOR [None]
  - WEIGHT DECREASED [None]
